FAERS Safety Report 21123540 (Version 1)
Quarter: 2022Q3

REPORT INFORMATION
  Report Type: Report from Study
  Country: JP (occurrence: JP)
  Receive Date: 20220724
  Receipt Date: 20220724
  Transmission Date: 20221026
  Serious: Yes (Hospitalization)
  Sender: FDA-Public Use
  Company Number: JP-SAKK-2018SA163231AA

PATIENT
  Age: 70 Year
  Sex: Female
  Weight: 57.2 kg

DRUGS (21)
  1. ISATUXIMAB [Suspect]
     Active Substance: ISATUXIMAB
     Indication: Plasma cell myeloma
     Dosage: 573 MG (10 MG/KG)
     Route: 042
     Dates: start: 20180612, end: 20180612
  2. ISATUXIMAB [Suspect]
     Active Substance: ISATUXIMAB
     Dosage: 572.5 (10 MG/KG)
     Route: 048
     Dates: start: 20180626, end: 20180626
  3. ISATUXIMAB [Suspect]
     Active Substance: ISATUXIMAB
     Dosage: 572.5 MG
     Route: 048
     Dates: start: 20180703, end: 20180703
  4. DEXAMETHASONE [Suspect]
     Active Substance: DEXAMETHASONE
     Indication: Plasma cell myeloma
     Dosage: 20 MG, QD
     Route: 048
     Dates: start: 20180613, end: 20180613
  5. DEXAMETHASONE [Suspect]
     Active Substance: DEXAMETHASONE
     Dosage: 20 MG, QD
     Route: 041
     Dates: start: 20180612, end: 20180612
  6. DEXAMETHASONE [Suspect]
     Active Substance: DEXAMETHASONE
     Dosage: 20 MG, QD
     Route: 048
     Dates: start: 20180615, end: 20180615
  7. DEXAMETHASONE [Suspect]
     Active Substance: DEXAMETHASONE
     Dosage: 20 MG, QD
     Route: 041
     Dates: start: 20180626, end: 20180626
  8. LENALIDOMIDE [Suspect]
     Active Substance: LENALIDOMIDE
     Indication: Plasma cell myeloma
     Dosage: 25 MG, QD
     Route: 048
     Dates: start: 20180612, end: 20180614
  9. BORTEZOMIB [Suspect]
     Active Substance: BORTEZOMIB
     Indication: Plasma cell myeloma
     Dosage: 2.04 MG, QD
     Route: 058
     Dates: start: 20180612, end: 20180612
  10. BORTEZOMIB [Suspect]
     Active Substance: BORTEZOMIB
     Dosage: UNK
     Route: 058
     Dates: start: 20180615, end: 20180615
  11. BORTEZOMIB [Suspect]
     Active Substance: BORTEZOMIB
     Dosage: 2.04 MG
     Route: 058
     Dates: start: 20180710, end: 20180710
  12. BORTEZOMIB [Suspect]
     Active Substance: BORTEZOMIB
     Dosage: 2.04 MG
     Route: 058
     Dates: start: 20180713, end: 20180713
  13. VALACYCLOVIR HYDROCHLORIDE [Concomitant]
     Active Substance: VALACYCLOVIR HYDROCHLORIDE
     Indication: Prophylaxis
     Dosage: 1 DF, BID
     Route: 048
     Dates: start: 20180612
  14. ASPIRIN [Concomitant]
     Active Substance: ASPIRIN
     Indication: Prophylaxis
     Dosage: 1 DF, QD
     Route: 048
     Dates: start: 20180612
  15. LOXOPROFEN SODIUM [Concomitant]
     Active Substance: LOXOPROFEN SODIUM
     Indication: Pain
     Dosage: UNK
     Route: 003
     Dates: start: 20180617
  16. MAGNESIUM OXIDE [Concomitant]
     Active Substance: MAGNESIUM OXIDE
     Indication: Constipation
     Dosage: PRN (FOR CONSTIPATION)
     Route: 048
     Dates: start: 20180616
  17. ACETAMINOPHEN [Concomitant]
     Active Substance: ACETAMINOPHEN
     Indication: Prophylaxis
     Dosage: 1000 MG/DAY
     Route: 048
     Dates: start: 20180612, end: 20180612
  18. CHLORPHENIRAMINE MALEATE [Concomitant]
     Active Substance: CHLORPHENIRAMINE MALEATE
     Indication: Prophylaxis
     Dosage: 10 MG/DAY
     Route: 042
     Dates: start: 20180612, end: 20180612
  19. FAMOTIDINE [Concomitant]
     Active Substance: FAMOTIDINE
     Indication: Prophylaxis
     Dosage: 20 MG/DAY
     Route: 042
     Dates: start: 20180612, end: 20180612
  20. SODIUM BICARBONATE [Concomitant]
     Active Substance: SODIUM BICARBONATE
     Indication: Product used for unknown indication
     Dosage: UNK
     Route: 041
     Dates: start: 20180613, end: 20180614
  21. SOLDEM 3A [Concomitant]
     Active Substance: CARBOHYDRATES\POTASSIUM CHLORIDE\SODIUM CHLORIDE\SODIUM LACTATE
     Indication: Product used for unknown indication
     Dosage: UNK
     Route: 041
     Dates: start: 20180613, end: 20180614

REACTIONS (1)
  - Blood fibrinogen decreased [Recovered/Resolved]

NARRATIVE: CASE EVENT DATE: 20180613
